FAERS Safety Report 4796442-5 (Version None)
Quarter: 2005Q4

REPORT INFORMATION
  Report Type: 
  Country: None (occurrence: None)
  Receive Date: 20051011
  Receipt Date: 20041101
  Transmission Date: 20060501
  Serious: Yes (Other)
  Sender: FDA-Public Use
  Company Number: 2004-11-0062

PATIENT
  Sex: Female

DRUGS (11)
  1. TEMODAR [Suspect]
     Indication: BRAIN NEOPLASM
     Dosage: 340MG QDX5D ORAL
     Route: 048
     Dates: start: 20040801
  2. RADIATION THERAPY [Suspect]
     Dosage: X-RAY THERAPY
  3. ASCORBIC ACID [Concomitant]
  4. VITAMIN E [Concomitant]
  5. BETA-CAROTENE [Concomitant]
  6. GLUTATHIONE [Concomitant]
  7. CELEBREX [Concomitant]
  8. BIOFLAVONOID [Concomitant]
  9. ARGININE [Concomitant]
  10. DHEA (DEHYDROEPIANDROSTERONE) [Concomitant]
  11. KEPPRA [Concomitant]

REACTIONS (4)
  - CONVULSION [None]
  - DISEASE RECURRENCE [None]
  - RED BLOOD CELL COUNT DECREASED [None]
  - WHITE BLOOD CELL COUNT DECREASED [None]
